FAERS Safety Report 19765408 (Version 1)
Quarter: 2021Q3

REPORT INFORMATION
  Report Type: Spontaneous
  Country: US (occurrence: US)
  Receive Date: 20210831
  Receipt Date: 20210831
  Transmission Date: 20211014
  Serious: No
  Sender: FDA-Public Use
  Company Number: US-BAUSCH-BL-2021-026960

PATIENT
  Age: 57 Year
  Sex: Female

DRUGS (3)
  1. LUMIFY [Suspect]
     Active Substance: BRIMONIDINE TARTRATE
     Indication: OCULAR HYPERAEMIA
     Dosage: AS NEEDED. STARTED YEARS AGO
     Route: 047
  2. LUMIFY [Suspect]
     Active Substance: BRIMONIDINE TARTRATE
     Dosage: AS NEEDED
     Route: 047
     Dates: start: 2021
  3. LUMIFY [Suspect]
     Active Substance: BRIMONIDINE TARTRATE
     Dosage: AS NEEDED. ABOUT 2 TO 3 WEEKS AGO
     Route: 047
     Dates: start: 202107, end: 2021

REACTIONS (2)
  - Product quality issue [Unknown]
  - Eye irritation [Recovered/Resolved]

NARRATIVE: CASE EVENT DATE: 202107
